FAERS Safety Report 9728196 (Version 2)
Quarter: 2013Q4

REPORT INFORMATION
  Report Type: Spontaneous
  Country: TR (occurrence: TR)
  Receive Date: 20131204
  Receipt Date: 20131210
  Transmission Date: 20140711
  Serious: Yes (Other)
  Sender: FDA-Public Use
  Company Number: TR-JNJFOC-20131116079

PATIENT
  Sex: 0

DRUGS (1)
  1. DOXORUBICIN HYDROCHLORIDE [Suspect]
     Indication: NEPHROBLASTOMA
     Route: 042

REACTIONS (6)
  - Blood pressure systolic increased [Unknown]
  - Ejection fraction decreased [Unknown]
  - Blood pressure diastolic increased [Unknown]
  - Diastolic dysfunction [Unknown]
  - Pulmonary congestion [Unknown]
  - Off label use [Unknown]
